FAERS Safety Report 14850914 (Version 1)
Quarter: 2018Q2

REPORT INFORMATION
  Report Type: Spontaneous
  Country: DE (occurrence: DE)
  Receive Date: 20180506
  Receipt Date: 20180506
  Transmission Date: 20180711
  Serious: Yes (Other)
  Sender: FDA-Public Use
  Company Number: PHHY2018DE076592

PATIENT
  Sex: Female

DRUGS (1)
  1. COSENTYX [Suspect]
     Active Substance: SECUKINUMAB
     Indication: PRODUCT USED FOR UNKNOWN INDICATION
     Dosage: 150 MG, QW
     Route: 065
     Dates: start: 20180420

REACTIONS (4)
  - Tinnitus [Recovering/Resolving]
  - Nausea [Unknown]
  - Depressed mood [Unknown]
  - Sudden hearing loss [Recovering/Resolving]

NARRATIVE: CASE EVENT DATE: 201804
